FAERS Safety Report 7523507-7 (Version None)
Quarter: 2011Q2

REPORT INFORMATION
  Report Type: 
  Country: None (occurrence: None)
  Receive Date: 20110603
  Receipt Date: 20110524
  Transmission Date: 20111010
  Serious: Yes (Hospitalization, Other)
  Sender: FDA-Public Use
  Company Number: UG-ABBOTT-11P-165-0709010-00

PATIENT
  Age: 38 Year
  Sex: Female

DRUGS (8)
  1. LOPINAVIR/RITONAVIR [Suspect]
     Indication: HIV INFECTION
     Route: 048
     Dates: start: 20101110
  2. ZIDOVUDINE [Concomitant]
     Indication: HIV INFECTION
  3. LAMIVUDINE [Concomitant]
     Indication: HIV INFECTION
     Dates: start: 20071029, end: 20101109
  4. RALTEGRAVIR [Concomitant]
     Indication: PRODUCT USED FOR UNKNOWN INDICATION
     Dates: start: 20101110
  5. TENOFOVIR DISOPROXIL FUMARATE [Concomitant]
     Indication: HIV INFECTION
     Dates: start: 20090106, end: 20101109
  6. COTRIM [Concomitant]
     Indication: PRODUCT USED FOR UNKNOWN INDICATION
     Dates: start: 20071029
  7. NEVIRAPINE [Concomitant]
     Indication: HIV INFECTION
     Dates: start: 20071029, end: 20101109
  8. ACLOVIR [Concomitant]
     Indication: PRODUCT USED FOR UNKNOWN INDICATION
     Dates: start: 20101110, end: 20101116

REACTIONS (23)
  - LETHARGY [None]
  - ANAEMIA [None]
  - ABDOMINAL DISTENSION [None]
  - DIZZINESS [None]
  - FATIGUE [None]
  - GENERAL PHYSICAL CONDITION ABNORMAL [None]
  - JAUNDICE [None]
  - HYPERTENSION [None]
  - PYREXIA [None]
  - PAIN IN EXTREMITY [None]
  - SKIN WARM [None]
  - ALOPECIA [None]
  - SEPSIS [None]
  - OEDEMA PERIPHERAL [None]
  - PALLOR [None]
  - BLOOD BILIRUBIN INCREASED [None]
  - ASTHENIA [None]
  - PAIN [None]
  - CACHEXIA [None]
  - PLASMODIUM FALCIPARUM INFECTION [None]
  - PALPITATIONS [None]
  - HEPATOMEGALY [None]
  - MALAISE [None]
